FAERS Safety Report 9815644 (Version 1)
Quarter: 2014Q1

REPORT INFORMATION
  Report Type: Spontaneous
  Country: AU (occurrence: AU)
  Receive Date: 20140114
  Receipt Date: 20140114
  Transmission Date: 20141002
  Serious: Yes (Other)
  Sender: FDA-Public Use
  Company Number: ALCN2014AU000547

PATIENT
  Sex: Female

DRUGS (1)
  1. SYSTANE [Suspect]
     Route: 047

REACTIONS (3)
  - Corneal scar [Unknown]
  - Eye injury [Unknown]
  - Product packaging issue [Unknown]
